FAERS Safety Report 4381650-8 (Version None)
Quarter: 2004Q2

REPORT INFORMATION
  Report Type: 
  Country: None (occurrence: None)
  Receive Date: 20040603
  Receipt Date: 20031124
  Transmission Date: 20050107
  Serious: Yes (Hospitalization)
  Sender: FDA-Public Use
  Company Number: 200317926US

PATIENT
  Sex: Male

DRUGS (3)
  1. ENOXAPARIN SODIUM [Suspect]
     Dosage: 40 MG QD SC
     Route: 058
  2. WARFARIN SODIUM [Concomitant]
  3. HYDROXYUREA [Concomitant]

REACTIONS (4)
  - ANAEMIA [None]
  - HAEMOGLOBIN DECREASED [None]
  - INTERNATIONAL NORMALISED RATIO INCREASED [None]
  - THROMBOCYTOPENIA [None]
